FAERS Safety Report 11270717 (Version 1)
Quarter: 2015Q3

REPORT INFORMATION
  Report Type: Report from Study
  Country: US (occurrence: US)
  Receive Date: 20150714
  Receipt Date: 20150714
  Transmission Date: 20151125
  Serious: Yes (Other)
  Sender: FDA-Public Use
  Company Number: US-BAYER-2015-250358

PATIENT
  Age: 70 Year
  Sex: Male

DRUGS (3)
  1. NEXAVAR [Suspect]
     Active Substance: SORAFENIB
     Indication: HEPATIC CANCER
     Dosage: 400 MG, BID
     Route: 048
     Dates: start: 20150505
  2. INSULIN [INSULIN] [Concomitant]
     Active Substance: INSULIN NOS
     Indication: BLOOD GLUCOSE NORMAL
  3. NEXAVAR [Suspect]
     Active Substance: SORAFENIB
     Indication: HEPATIC CANCER
     Dosage: 400 MG, BID
     Route: 048
     Dates: start: 20150703

REACTIONS (3)
  - Hypertension [None]
  - Haematochezia [None]
  - Gastric ulcer [None]

NARRATIVE: CASE EVENT DATE: 20150515
